FAERS Safety Report 23822319 (Version 5)
Quarter: 2024Q4

REPORT INFORMATION
  Report Type: Spontaneous
  Country: IE (occurrence: IE)
  Receive Date: 20240506
  Receipt Date: 20241008
  Transmission Date: 20250114
  Serious: Yes (Hospitalization, Other)
  Sender: PFIZER
  Company Number: IE-PFIZER INC-202400099020

PATIENT
  Age: 36 Year
  Sex: Female
  Weight: 66.4 kg

DRUGS (3)
  1. PROSTIN E2 [Suspect]
     Active Substance: DINOPROSTONE
     Indication: Induced labour
     Dosage: 2 MG
     Route: 067
     Dates: start: 20230418, end: 20230418
  2. PROSTIN E2 [Suspect]
     Active Substance: DINOPROSTONE
     Dosage: UNK
  3. TINZAPARIN [Concomitant]
     Active Substance: TINZAPARIN
     Dosage: UNK

REACTIONS (3)
  - Uterine hyperstimulation [Not Recovered/Not Resolved]
  - Postpartum haemorrhage [Not Recovered/Not Resolved]
  - Haemorrhage in pregnancy [Not Recovered/Not Resolved]

NARRATIVE: CASE EVENT DATE: 20230418
